FAERS Safety Report 21242186 (Version 2)
Quarter: 2025Q2

REPORT INFORMATION
  Report Type: Spontaneous
  Country: CA (occurrence: CA)
  Receive Date: 20220823
  Receipt Date: 20250602
  Transmission Date: 20250717
  Serious: Yes (Death, Other)
  Sender: AUROBINDO
  Company Number: CA-AUROBINDO-AUR-APL-2022-033082

PATIENT
  Age: 2 Day
  Weight: 1.9 kg

DRUGS (2)
  1. VALSARTAN [Suspect]
     Active Substance: VALSARTAN
     Indication: Maternal exposure timing unspecified
     Route: 064
  2. LASIX [Suspect]
     Active Substance: FUROSEMIDE
     Indication: Maternal exposure timing unspecified
     Route: 064

REACTIONS (4)
  - Angiotensin converting enzyme inhibitor foetopathy [Fatal]
  - Renal tubular dysfunction [Fatal]
  - Foetal exposure during pregnancy [Fatal]
  - Hypocalvaria [Fatal]
